FAERS Safety Report 4315696-2 (Version None)
Quarter: 2004Q1

REPORT INFORMATION
  Report Type: 
  Country: None (occurrence: None)
  Receive Date: 20040310
  Receipt Date: 20040301
  Transmission Date: 20041129
  Serious: Yes (Other)
  Sender: FDA-Public Use
  Company Number: 200411043BCC

PATIENT
  Age: 43 Year
  Sex: Female
  Weight: 68.0396 kg

DRUGS (2)
  1. ALEVE [Suspect]
     Dosage: 1760 MG, QD, ORAL
     Route: 048
     Dates: start: 20040228, end: 20040229
  2. LOESTRIN 1.5/30 [Concomitant]

REACTIONS (2)
  - DIZZINESS [None]
  - LOSS OF CONSCIOUSNESS [None]
